FAERS Safety Report 5555873-6 (Version None)
Quarter: 2007Q4

REPORT INFORMATION
  Report Type: 
  Country: None (occurrence: None)
  Receive Date: 20071213
  Receipt Date: 20071212
  Transmission Date: 20080405
  Serious: Yes (Other)
  Sender: FDA-Public Use
  Company Number: US-BOEHRINGER INGELHEIM PHARMACEUTICALS, INC.-2006-BP-13323BP

PATIENT
  Sex: Female

DRUGS (7)
  1. CATAPRES [Suspect]
     Indication: HYPERTENSION
  2. TOPROL-XL [Suspect]
     Route: 048
  3. FLUOXETINE [Concomitant]
  4. NPH [Concomitant]
  5. NITROGLYCERIN [Concomitant]
  6. CYCLOBENZAPRINE HCL [Concomitant]
  7. OXYCODONE WITH APAP [Concomitant]
     Indication: PAIN

REACTIONS (2)
  - BLOOD PRESSURE DIASTOLIC INCREASED [None]
  - HYPERTENSION [None]
